FAERS Safety Report 6133979-0 (Version None)
Quarter: 2009Q1

REPORT INFORMATION
  Report Type: 
  Country: None (occurrence: None)
  Receive Date: 20090326
  Receipt Date: 20090320
  Transmission Date: 20090719
  Serious: Yes (Disabling)
  Sender: FDA-Public Use
  Company Number: PHHY2009IT10628

PATIENT
  Sex: Female

DRUGS (3)
  1. AREDIA [Suspect]
     Indication: MULTIPLE MYELOMA
     Dosage: 90 MG, QMO
     Route: 042
     Dates: start: 20001127
  2. ZOMETA [Suspect]
     Indication: MULTIPLE MYELOMA
     Dosage: 4 MG, UNK
     Route: 042
     Dates: start: 20020301, end: 20070514
  3. COUMADIN [Concomitant]
     Dosage: 5 MG/DAY
     Route: 048

REACTIONS (3)
  - DEBRIDEMENT [None]
  - JAW OPERATION [None]
  - OSTEONECROSIS [None]
